FAERS Safety Report 8070601-0 (Version None)
Quarter: 2012Q1

REPORT INFORMATION
  Report Type: 
  Country: None (occurrence: None)
  Receive Date: 20120125
  Receipt Date: 20120114
  Transmission Date: 20120608
  Serious: Yes (Hospitalization)
  Sender: FDA-Public Use
  Company Number: PHHO2012IT001124

PATIENT
  Sex: Male

DRUGS (11)
  1. ENALAPRIL MALEATE [Suspect]
     Indication: CARDIAC FAILURE
     Dosage: UNK
  2. AMIODARONE HCL [Concomitant]
     Indication: ATRIAL FIBRILLATION
     Dosage: 200 MG, BID
     Route: 048
     Dates: start: 20111001
  3. FRAGMIN [Concomitant]
     Indication: ATRIAL FIBRILLATION
     Dosage: UNK
     Dates: start: 20111001
  4. FUROSEMIDE [Concomitant]
     Indication: CONGESTIVE CARDIOMYOPATHY
     Dosage: 100 MG, BID
     Route: 048
     Dates: start: 20111001
  5. RANITIDINE [Concomitant]
     Indication: PROPHYLAXIS
     Dosage: 300 MG, BID
     Route: 048
     Dates: start: 20111001
  6. RAMIPRIL [Suspect]
     Dosage: 1.25 MG, BID
     Route: 048
     Dates: start: 20120109, end: 20120114
  7. BLINDED ALISKIREN [Suspect]
     Indication: CARDIAC FAILURE
     Dosage: UNK
  8. BLINDED NO TREATMENT RECEIVED [Suspect]
     Indication: CARDIAC FAILURE
     Dosage: UNK
  9. ENALAPRIL MALEATE [Suspect]
     Dosage: UNK
     Dates: start: 20111206, end: 20120114
  10. TEKTURNA [Suspect]
     Dosage: UNK
     Dates: start: 20111206, end: 20120101
  11. CARVEDILOL [Concomitant]
     Indication: CONGESTIVE CARDIOMYOPATHY
     Dosage: 30 MG, BID
     Route: 048
     Dates: start: 20111001

REACTIONS (1)
  - RENAL FAILURE ACUTE [None]
